FAERS Safety Report 7105281-1 (Version None)
Quarter: 2010Q4

REPORT INFORMATION
  Report Type: 
  Country: None (occurrence: None)
  Receive Date: 20101116
  Receipt Date: 20101109
  Transmission Date: 20110411
  Serious: Yes (Hospitalization)
  Sender: FDA-Public Use
  Company Number: US-PFIZER INC-2010143892

PATIENT
  Sex: Male
  Weight: 64.4 kg

DRUGS (5)
  1. LIPITOR [Suspect]
     Indication: BLOOD CHOLESTEROL ABNORMAL
     Dosage: 20 MG, 1X/DAY
     Route: 048
  2. LIPITOR [Suspect]
     Indication: CORONARY ARTERY DISEASE
  3. DYAZIDE [Concomitant]
     Indication: HYPERTENSION
     Dosage: 37.5 MG, 1X/DAY
     Route: 048
  4. GLYBURIDE [Concomitant]
     Indication: TYPE 2 DIABETES MELLITUS
     Dosage: 10 MG, 1X/DAY
     Route: 048
  5. METFORMIN [Concomitant]
     Indication: TYPE 2 DIABETES MELLITUS
     Dosage: 2000 MG, 1X/DAY

REACTIONS (4)
  - CARDIAC OPERATION [None]
  - MUSCULAR WEAKNESS [None]
  - MUSCULOSKELETAL PAIN [None]
  - PAIN IN EXTREMITY [None]
